FAERS Safety Report 4756089-3 (Version None)
Quarter: 2005Q3

REPORT INFORMATION
  Report Type: 
  Country: None (occurrence: None)
  Receive Date: 20050829
  Receipt Date: 20050829
  Transmission Date: 20060218
  Serious: Yes (Life-Threatening, Disabling)
  Sender: FDA-Public Use
  Company Number: None

PATIENT
  Sex: Female
  Weight: 54.4316 kg

DRUGS (1)
  1. EFFEXOR XR [Suspect]
     Indication: MENOPAUSE
     Dosage: 150 MG   DAILY   PO
     Route: 048

REACTIONS (1)
  - DRUG WITHDRAWAL SYNDROME [None]
